FAERS Safety Report 4588511-X (Version None)
Quarter: 2005Q1

REPORT INFORMATION
  Report Type: 
  Country: None (occurrence: None)
  Receive Date: 20050216
  Receipt Date: 20050216
  Transmission Date: 20050727
  Serious: Yes (Other)
  Sender: FDA-Public Use
  Company Number: None

PATIENT
  Sex: Male

DRUGS (1)
  1. FLOMAX [Suspect]
     Indication: PROSTATE CANCER

REACTIONS (3)
  - IRIS DISORDER [None]
  - MIOSIS [None]
  - PROCEDURAL COMPLICATION [None]
